FAERS Safety Report 19494442 (Version 1)
Quarter: 2021Q3

REPORT INFORMATION
  Report Type: Report from Study
  Country: US (occurrence: US)
  Receive Date: 20210705
  Receipt Date: 20210705
  Transmission Date: 20211014
  Serious: Yes (Other)
  Sender: FDA-Public Use
  Company Number: US-TAKEDA-2021TUS040753

PATIENT
  Sex: Male

DRUGS (1)
  1. BRIGATINIB [Suspect]
     Active Substance: BRIGATINIB
     Indication: MALIGNANT MEDIASTINAL NEOPLASM
     Dosage: 180 MILLIGRAM, QD
     Route: 048
     Dates: start: 20210604, end: 20210608

REACTIONS (3)
  - Pleural effusion [Unknown]
  - Hypercoagulation [Unknown]
  - Gout [Unknown]
